FAERS Safety Report 14133615 (Version 1)
Quarter: 2017Q4

REPORT INFORMATION
  Report Type: Spontaneous
  Country: FR (occurrence: FR)
  Receive Date: 20171027
  Receipt Date: 20171027
  Transmission Date: 20180321
  Serious: Yes (Life-Threatening, Other)
  Sender: FDA-Public Use
  Company Number: FR-ALVOGEN-2017-ALVOGEN-093891

PATIENT
  Sex: Male

DRUGS (8)
  1. SOMATOSTATIN [Concomitant]
     Active Substance: SOMATOSTATIN
     Indication: GASTROINTESTINAL HAEMORRHAGE
  2. HEPARIN CALCIUM [Concomitant]
     Active Substance: HEPARIN CALCIUM
     Indication: ANTICOAGULANT THERAPY
     Route: 058
  3. BUDESONIDE. [Suspect]
     Active Substance: BUDESONIDE
     Indication: GASTROINTESTINAL HAEMORRHAGE
     Route: 048
  4. BUDESONIDE. [Suspect]
     Active Substance: BUDESONIDE
     Indication: HYPOALBUMINAEMIA
     Route: 048
  5. SOMATOSTATIN [Concomitant]
     Active Substance: SOMATOSTATIN
     Indication: HYPOALBUMINAEMIA
     Route: 058
  6. ALBUMIN HUMAN [Concomitant]
     Active Substance: ALBUMIN HUMAN
     Indication: HYPOALBUMINAEMIA
  7. SOMATOSTATIN [Concomitant]
     Active Substance: SOMATOSTATIN
     Indication: HYPOALBUMINAEMIA
  8. BUDESONIDE. [Suspect]
     Active Substance: BUDESONIDE
     Indication: HYPOALBUMINAEMIA
     Route: 048

REACTIONS (4)
  - Epstein-Barr virus infection [Unknown]
  - Hypokalaemia [Unknown]
  - Precursor B-lymphoblastic lymphoma [Unknown]
  - Cushing^s syndrome [Unknown]
